FAERS Safety Report 5928153-4 (Version None)
Quarter: 2008Q4

REPORT INFORMATION
  Report Type: 
  Country: None (occurrence: None)
  Receive Date: 20081022
  Receipt Date: 20081022
  Transmission Date: 20090506
  Serious: Yes (Other)
  Sender: FDA-Public Use
  Company Number: None

PATIENT
  Age: 18 Year
  Sex: Female
  Weight: 56.6996 kg

DRUGS (1)
  1. IMITREX [Suspect]
     Indication: MIGRAINE
     Dosage: 5 MG PER SPRAY 1 SPRAY/NOSTRIL ONSET OF MIGRAINE NASAL
     Route: 045
     Dates: start: 20081020, end: 20081020

REACTIONS (6)
  - DRY EYE [None]
  - EYE INFLAMMATION [None]
  - EYE IRRITATION [None]
  - EYE PAIN [None]
  - PHOTOPHOBIA [None]
  - VISION BLURRED [None]
